FAERS Safety Report 25179692 (Version 1)
Quarter: 2025Q2

REPORT INFORMATION
  Report Type: Spontaneous
  Country: BR (occurrence: BR)
  Receive Date: 20250409
  Receipt Date: 20250409
  Transmission Date: 20250716
  Serious: Yes (Other)
  Sender: BAYER
  Company Number: BR-BAYER-2025A045878

PATIENT
  Age: 63 Year
  Sex: Male

DRUGS (5)
  1. STIVARGA [Suspect]
     Active Substance: REGORAFENIB MONOHYDRATE
     Indication: Colorectal cancer metastatic
     Dosage: 120 MG, QD, 1 CYCLE
     Route: 048
     Dates: start: 20201214
  2. STIVARGA [Suspect]
     Active Substance: REGORAFENIB MONOHYDRATE
     Indication: Colorectal cancer metastatic
     Route: 048
  3. STIVARGA [Suspect]
     Active Substance: REGORAFENIB MONOHYDRATE
     Indication: Colorectal cancer metastatic
     Route: 048
  4. STIVARGA [Suspect]
     Active Substance: REGORAFENIB MONOHYDRATE
     Indication: Colorectal cancer metastatic
     Route: 048
  5. STIVARGA [Suspect]
     Active Substance: REGORAFENIB MONOHYDRATE
     Indication: Colorectal cancer metastatic
     Route: 048
     Dates: end: 202112

REACTIONS (7)
  - Lung disorder [None]
  - Liver disorder [None]
  - Lymphadenopathy [None]
  - Anaemia [None]
  - Diarrhoea [None]
  - Fatigue [None]
  - Product use issue [None]

NARRATIVE: CASE EVENT DATE: 20210101
